FAERS Safety Report 9805667 (Version 1)
Quarter: 2014Q1

REPORT INFORMATION
  Report Type: Spontaneous
  Country: US (occurrence: None)
  Receive Date: 20140108
  Receipt Date: 20140108
  Transmission Date: 20141002
  Serious: Yes (Hospitalization)
  Sender: FDA-Public Use
  Company Number: None

PATIENT
  Age: 83 Year
  Sex: Male
  Weight: 98 kg

DRUGS (8)
  1. IPILIMUMAB [Suspect]
     Indication: METASTATIC MALIGNANT MELANOMA
     Dosage: X4 DOSES
     Route: 042
     Dates: start: 20131120, end: 20140103
  2. ADVAIR DISKUS [Concomitant]
  3. IPRATROPIUM-ALBUTEROL [Concomitant]
  4. FLUTICASONE PROPIONATE [Concomitant]
  5. XOPENEX [Concomitant]
  6. GLIMEPIRIDE [Concomitant]
  7. METFORMIN [Concomitant]
  8. CRESTOR [Concomitant]

REACTIONS (4)
  - Dyspnoea [None]
  - Cough [None]
  - Chronic obstructive pulmonary disease [None]
  - Pneumonia [None]
